FAERS Safety Report 4790170-8 (Version None)
Quarter: 2005Q3

REPORT INFORMATION
  Report Type: 
  Country: None (occurrence: None)
  Receive Date: 20050914
  Receipt Date: 20040730
  Transmission Date: 20060218
  Serious: No
  Sender: FDA-Public Use
  Company Number: 163-20785-04070128

PATIENT
  Age: 81 Year
  Sex: Male

DRUGS (2)
  1. THALOMID [Suspect]
     Indication: MULTIPLE MYELOMA
     Dosage: 50 MG, DAILY, ORAL
     Route: 048
     Dates: start: 20040312, end: 20040101
  2. ECADRON (DEXAMETHASONE) [Concomitant]

REACTIONS (4)
  - CONSTIPATION [None]
  - DEHYDRATION [None]
  - NEUROPATHY [None]
  - SOMNOLENCE [None]
